FAERS Safety Report 8494086-5 (Version None)
Quarter: 2012Q2

REPORT INFORMATION
  Report Type: 
  Country: None (occurrence: None)
  Receive Date: 20120629
  Receipt Date: 20120629
  Transmission Date: 20120825
  Serious: Yes (Hospitalization)
  Sender: FDA-Public Use
  Company Number: None

PATIENT
  Age: 22 Year
  Sex: Female
  Weight: 63.5036 kg

DRUGS (1)
  1. NECON 1/35 35MG [Suspect]
     Indication: CONTRACEPTION
     Dosage: 1 DAILY
     Dates: start: 20111001, end: 20120228

REACTIONS (3)
  - PLEURAL EFFUSION [None]
  - THROMBOSIS [None]
  - PULMONARY THROMBOSIS [None]
